FAERS Safety Report 6327925-4 (Version None)
Quarter: 2009Q3

REPORT INFORMATION
  Report Type: 
  Country: None (occurrence: None)
  Receive Date: 20090824
  Receipt Date: 20090818
  Transmission Date: 20100115
  Serious: Yes (Hospitalization)
  Sender: FDA-Public Use
  Company Number: GXKR2009DE09289

PATIENT
  Age: 82 Year
  Sex: Female
  Weight: 83 kg

DRUGS (5)
  1. IBUPROFEN [Suspect]
     Indication: PAIN
     Dosage: 600 MG, QD, ORAL; 600 MG, BID, ORAL
     Route: 048
     Dates: start: 20090707, end: 20090727
  2. IBUPROFEN [Suspect]
     Indication: PAIN
     Dosage: 600 MG, QD, ORAL; 600 MG, BID, ORAL
     Route: 048
     Dates: start: 20090727, end: 20090729
  3. ACETYLSALICYLIC ACID SRT [Concomitant]
  4. BIPRETERAX (INDAPAMIDE, PERINDOPRIL ERBUMINE) [Concomitant]
  5. PANTOPRAZOLE SODIUM [Concomitant]

REACTIONS (1)
  - COLITIS [None]
